FAERS Safety Report 11844125 (Version 1)
Quarter: 2015Q4

REPORT INFORMATION
  Report Type: Other
  Country: US (occurrence: US)
  Receive Date: 20151217
  Receipt Date: 20151217
  Transmission Date: 20160305
  Serious: Yes (Other)
  Sender: FDA-Public Use
  Company Number: US-IROKO PHARMACEUTICALS LLC-IND1-US-2009-0037

PATIENT
  Age: 68 Year
  Sex: Male

DRUGS (4)
  1. INDOCIN [Suspect]
     Active Substance: INDOMETHACIN\INDOMETHACIN SODIUM
     Indication: SWELLING
     Route: 048
     Dates: end: 20090608
  2. SUTENT [Suspect]
     Active Substance: SUNITINIB MALATE
     Indication: RENAL CELL CARCINOMA
     Dates: start: 20070401, end: 20071231
  3. SUTENT [Suspect]
     Active Substance: SUNITINIB MALATE
     Dates: start: 200905
  4. NEXAVAR [Suspect]
     Active Substance: SORAFENIB
     Dates: start: 20080101, end: 20090331

REACTIONS (4)
  - Decreased appetite [Unknown]
  - Blood creatinine increased [Recovered/Resolved]
  - Gastrointestinal haemorrhage [Unknown]
  - Paraesthesia [Unknown]

NARRATIVE: CASE EVENT DATE: 20090805
